FAERS Safety Report 10075075 (Version 1)
Quarter: 2014Q2

REPORT INFORMATION
  Report Type: Spontaneous
  Country: US (occurrence: US)
  Receive Date: 20140414
  Receipt Date: 20140414
  Transmission Date: 20141212
  Serious: No
  Sender: FDA-Public Use
  Company Number: US-BIOGENIDEC-2014BI029163

PATIENT
  Age: 41 Year
  Sex: Female

DRUGS (1)
  1. TECFIDERA [Suspect]
     Indication: MULTIPLE SCLEROSIS
     Route: 048
     Dates: start: 20140301, end: 20140307

REACTIONS (8)
  - Anxiety [Unknown]
  - Eye irritation [Unknown]
  - Palpitations [Unknown]
  - Headache [Unknown]
  - Paraesthesia [Unknown]
  - Night sweats [Unknown]
  - Flushing [Unknown]
  - Rash erythematous [Unknown]
